FAERS Safety Report 24363963 (Version 2)
Quarter: 2024Q4

REPORT INFORMATION
  Report Type: Spontaneous
  Country: US (occurrence: US)
  Receive Date: 20240925
  Receipt Date: 20241104
  Transmission Date: 20250115
  Serious: Yes (Other)
  Sender: BRISTOL-MYERS SQUIBB COMPANY
  Company Number: US-BRISTOL-MYERS SQUIBB COMPANY-2024-151128

PATIENT
  Age: 67 Year
  Sex: Male

DRUGS (1)
  1. POMALYST [Suspect]
     Active Substance: POMALIDOMIDE
     Indication: Plasma cell myeloma
     Dosage: TAKE 1 CAPSULE BY MOUTH EVERY DAY ON DAYS 1-21. DO NOT TAKE ON DAYS 22-28. REPEAT CYCLE
     Route: 048

REACTIONS (3)
  - Ligament disorder [Recovered/Resolved]
  - Osteomyelitis [Recovered/Resolved]
  - Laboratory test abnormal [Recovered/Resolved]
